FAERS Safety Report 6410837-5 (Version None)
Quarter: 2009Q4

REPORT INFORMATION
  Report Type: 
  Country: None (occurrence: None)
  Receive Date: 20091022
  Receipt Date: 20091012
  Transmission Date: 20100525
  Serious: Yes (Hospitalization, Other)
  Sender: FDA-Public Use
  Company Number: MW-ABBOTT-09P-100-0602319-00

PATIENT
  Age: 27 Year
  Sex: Female

DRUGS (3)
  1. ALUVIA TABLETS [Suspect]
     Indication: PROPHYLAXIS AGAINST HIV INFECTION
     Route: 048
     Dates: start: 20090814
  2. EMTRICITABINE W/TENOFOVIR DISOPROXIL FUMARATE [Concomitant]
     Indication: PROPHYLAXIS AGAINST HIV INFECTION
     Dates: start: 20090518, end: 20090814
  3. EFAVIRENZ [Concomitant]
     Indication: PROPHYLAXIS AGAINST HIV INFECTION
     Dates: start: 20090518, end: 20090814

REACTIONS (1)
  - ABORTION SPONTANEOUS [None]
